FAERS Safety Report 6091886-6 (Version None)
Quarter: 2009Q1

REPORT INFORMATION
  Report Type: 
  Country: None (occurrence: None)
  Receive Date: 20090219
  Receipt Date: 20090113
  Transmission Date: 20090719
  Serious: No
  Sender: FDA-Public Use
  Company Number: WAES 0901USA01628

PATIENT
  Age: 66 Year
  Sex: Male

DRUGS (6)
  1. JANUVIA [Suspect]
     Indication: TYPE 2 DIABETES MELLITUS
     Dosage: 100 MG/DAILY/PO
     Route: 048
     Dates: start: 20090106, end: 20090112
  2. NIFEDIAC [Concomitant]
  3. VASOTEC [Concomitant]
  4. GEMFIBROZIL [Concomitant]
  5. GLIPIZIDE [Concomitant]
  6. METFORMIN HCL [Concomitant]

REACTIONS (3)
  - ANXIETY [None]
  - BLOOD GLUCOSE INCREASED [None]
  - CHEST PAIN [None]
